FAERS Safety Report 7548642-9 (Version None)
Quarter: 2011Q2

REPORT INFORMATION
  Report Type: 
  Country: None (occurrence: None)
  Receive Date: 20110608
  Receipt Date: 20110531
  Transmission Date: 20111010
  Serious: Yes (Other)
  Sender: FDA-Public Use
  Company Number: CC-11-049

PATIENT
  Age: 38 Year
  Sex: Female
  Weight: 59.8748 kg

DRUGS (7)
  1. PROTONIX [Concomitant]
  2. ADVAIR DISKUS 100/50 [Concomitant]
  3. MIRALAX [Concomitant]
  4. XOPENEX [Concomitant]
  5. DOCUSATE SODIUM LIQUID-50 MG/ 5 ML [Suspect]
     Dosage: SINGLE DOSE OF 10 ML
     Dates: start: 20090623
  6. PREDNISONE [Concomitant]
  7. TAMIFLU [Concomitant]

REACTIONS (2)
  - OROPHARYNGEAL BLISTERING [None]
  - PHARYNGEAL OEDEMA [None]
